FAERS Safety Report 6438851-4 (Version None)
Quarter: 2009Q4

REPORT INFORMATION
  Report Type: 
  Country: None (occurrence: None)
  Receive Date: 20091110
  Receipt Date: 20091102
  Transmission Date: 20100525
  Serious: Yes (Hospitalization, Other)
  Sender: FDA-Public Use
  Company Number: 2009SP017372

PATIENT
  Age: 53 Year
  Sex: Female
  Weight: 68.0396 kg

DRUGS (20)
  1. NUVARING [Suspect]
     Indication: HORMONE REPLACEMENT THERAPY
     Dosage: 1 DF;QM;VAG
     Route: 067
     Dates: start: 20030801, end: 20070101
  2. MOBIC [Concomitant]
  3. SKELAXIN [Concomitant]
  4. ALEVE [Concomitant]
  5. AMBIEN CR [Concomitant]
  6. ALLEGRA [Concomitant]
  7. ZOLOFT [Concomitant]
  8. EFFEXOR XR [Concomitant]
  9. PREDNISONE 6 [Concomitant]
  10. TRETINOIN [Concomitant]
  11. FLUOROMETHOLONE [Concomitant]
  12. HYDROCODONE BITARTRATE AND ACETAMINOPHEN [Concomitant]
  13. TOBRADEX [Concomitant]
  14. ZITHROMAX [Concomitant]
  15. BACTROBAN [Concomitant]
  16. DOXYCYCLINE [Concomitant]
  17. TRILYTE [Concomitant]
  18. SULFAMETHOXAZOLE AND TRIMETHOPRIM [Concomitant]
  19. HYDROCODONE BITARTRATE AND ACETAMINOPHEN [Concomitant]
  20. TRANSDERM SCOP [Concomitant]

REACTIONS (12)
  - BLEPHAROPLASTY [None]
  - DIVERTICULUM INTESTINAL [None]
  - EYELID PTOSIS [None]
  - FOLLICULITIS [None]
  - HAEMORRHOIDS [None]
  - INTERVERTEBRAL DISC PROTRUSION [None]
  - NAUSEA [None]
  - PULMONARY EMBOLISM [None]
  - SKIN CANCER [None]
  - URINARY TRACT DISORDER [None]
  - VOMITING [None]
  - VULVAL DISORDER [None]
